FAERS Safety Report 12545610 (Version 2)
Quarter: 2016Q4

REPORT INFORMATION
  Report Type: Spontaneous
  Country: DE (occurrence: DE)
  Receive Date: 20160711
  Receipt Date: 20161025
  Transmission Date: 20170207
  Serious: Yes (Death, Life-Threatening, Hospitalization)
  Sender: FDA-Public Use
  Company Number: DE-TEVA-674016GER

PATIENT
  Age: 67 Year
  Sex: Male
  Weight: 80 kg

DRUGS (1)
  1. AMIODARON [Suspect]
     Active Substance: AMIODARONE
     Indication: ARRHYTHMIA
     Dosage: 200 MILLIGRAM DAILY;

REACTIONS (6)
  - Polyneuropathy [Fatal]
  - Pulmonary fibrosis [Fatal]
  - Fall [Fatal]
  - Respiratory failure [Fatal]
  - Dyspnoea [Fatal]
  - Gait disturbance [Fatal]

NARRATIVE: CASE EVENT DATE: 20150728
